FAERS Safety Report 24582307 (Version 1)
Quarter: 2024Q4

REPORT INFORMATION
  Report Type: Report from Study
  Country: US (occurrence: US)
  Receive Date: 20241105
  Receipt Date: 20241105
  Transmission Date: 20250115
  Serious: Yes (Other)
  Sender: ALEXION PHARMACEUTICALS
  Company Number: US-AstraZeneca-CH-00727021A

PATIENT

DRUGS (4)
  1. OSIMERTINIB [Suspect]
     Active Substance: OSIMERTINIB
     Indication: Lung carcinoma cell type unspecified stage 0
  2. OSIMERTINIB [Suspect]
     Active Substance: OSIMERTINIB
  3. OSIMERTINIB [Suspect]
     Active Substance: OSIMERTINIB
  4. OSIMERTINIB [Suspect]
     Active Substance: OSIMERTINIB

REACTIONS (10)
  - Fatigue [Unknown]
  - Insomnia [Unknown]
  - Pain [Unknown]
  - Abdominal discomfort [Unknown]
  - Cardiac disorder [Unknown]
  - Angina pectoris [Unknown]
  - Chest pain [Unknown]
  - Dyspepsia [Unknown]
  - Discomfort [Unknown]
  - Feeding disorder [Unknown]
